FAERS Safety Report 16206996 (Version 1)
Quarter: 2019Q2

REPORT INFORMATION
  Report Type: Report from Study
  Country: None (occurrence: NL)
  Receive Date: 20190417
  Receipt Date: 20190417
  Transmission Date: 20190711
  Serious: Yes (Hospitalization)
  Sender: FDA-Public Use
  Company Number: NL-ABBVIE-19S-114-2737982-00

PATIENT
  Sex: Male

DRUGS (3)
  1. SYNAGIS [Suspect]
     Active Substance: PALIVIZUMAB
     Indication: HEART DISEASE CONGENITAL
     Route: 050
     Dates: start: 20190111, end: 20190111
  2. SYNAGIS [Suspect]
     Active Substance: PALIVIZUMAB
     Route: 050
     Dates: start: 20190210, end: 20190210
  3. SYNAGIS [Suspect]
     Active Substance: PALIVIZUMAB
     Route: 050
     Dates: start: 20190311, end: 20190311

REACTIONS (2)
  - Dehydration [Not Recovered/Not Resolved]
  - Diarrhoea [Not Recovered/Not Resolved]

NARRATIVE: CASE EVENT DATE: 2019
